FAERS Safety Report 14432741 (Version 4)
Quarter: 2018Q3

REPORT INFORMATION
  Report Type: Spontaneous
  Country: US (occurrence: US)
  Receive Date: 20180124
  Receipt Date: 20180725
  Transmission Date: 20181010
  Serious: Yes (Other)
  Sender: FDA-Public Use
  Company Number: US-PFIZER INC-2018028584

PATIENT
  Age: 67 Year
  Sex: Male
  Weight: 72.57 kg

DRUGS (2)
  1. DRUG, UNSPECIFIED [Suspect]
     Active Substance: UNSPECIFIED INGREDIENT
     Dosage: 5 MG, UNK
  2. DRUG, UNSPECIFIED [Suspect]
     Active Substance: UNSPECIFIED INGREDIENT
     Dosage: 5 MG, 2X/DAY
     Route: 048

REACTIONS (1)
  - Head injury [Unknown]
